FAERS Safety Report 7086562-7 (Version None)
Quarter: 2010Q4

REPORT INFORMATION
  Report Type: 
  Country: None (occurrence: None)
  Receive Date: 20101105
  Receipt Date: 20101025
  Transmission Date: 20110411
  Serious: Yes (Death, Other)
  Sender: FDA-Public Use
  Company Number: PHHY2010JP64975

PATIENT
  Sex: Male

DRUGS (3)
  1. DIOVAN [Suspect]
     Indication: HYPERTENSION
     Dosage: 40 MG, QD
     Route: 048
     Dates: start: 20071106
  2. ADALAT CC [Concomitant]
     Indication: HYPERTENSION
     Dosage: 40 MG
     Route: 048
     Dates: start: 20030801
  3. PENFILL R [Concomitant]
     Dosage: 30 IU
     Route: 058
     Dates: start: 20040402

REACTIONS (4)
  - BLOOD POTASSIUM INCREASED [None]
  - BLOOD PRESSURE DIASTOLIC DECREASED [None]
  - BLOOD UREA INCREASED [None]
  - CARDIO-RESPIRATORY ARREST [None]
